FAERS Safety Report 18238220 (Version 2)
Quarter: 2020Q3

REPORT INFORMATION
  Report Type: Spontaneous
  Country: JP (occurrence: JP)
  Receive Date: 20200907
  Receipt Date: 20200922
  Transmission Date: 20201103
  Serious: Yes (Hospitalization)
  Sender: FDA-Public Use
  Company Number: JP-TEVA-2020-JP-1824778

PATIENT
  Age: 80 Year
  Sex: Female

DRUGS (8)
  1. DONEPEZIL. [Suspect]
     Active Substance: DONEPEZIL
     Dosage: 10 MILLIGRAM DAILY; AT 08:00 HOURS
     Route: 048
  2. SENNOSIDE [Concomitant]
     Active Substance: SENNOSIDES
     Indication: CHRONIC GASTRITIS
     Route: 065
  3. FAMOTIDINE. [Concomitant]
     Active Substance: FAMOTIDINE
     Indication: CONSTIPATION
  4. MAGNESIUM OXIDE. [Concomitant]
     Active Substance: MAGNESIUM OXIDE
     Indication: CONSTIPATION
  5. DONEPEZIL. [Suspect]
     Active Substance: DONEPEZIL
     Indication: DEMENTIA ALZHEIMER^S TYPE
     Dosage: 5 MILLIGRAM DAILY;
     Route: 048
  6. SENNOSIDE [Concomitant]
     Active Substance: SENNOSIDES
     Indication: CONSTIPATION
  7. FAMOTIDINE. [Concomitant]
     Active Substance: FAMOTIDINE
     Indication: CHRONIC GASTRITIS
     Route: 065
  8. MAGNESIUM OXIDE. [Concomitant]
     Active Substance: MAGNESIUM OXIDE
     Indication: CHRONIC GASTRITIS
     Route: 065

REACTIONS (8)
  - Coma [Recovered/Resolved]
  - Sinus bradycardia [Recovered/Resolved]
  - Miosis [Recovered/Resolved]
  - Unresponsive to stimuli [Recovered/Resolved]
  - Gastrointestinal sounds abnormal [Recovered/Resolved]
  - Somnolence [Recovered/Resolved]
  - Cholinergic syndrome [Recovered/Resolved]
  - Cerebral atrophy [Recovered/Resolved]
